FAERS Safety Report 19831596 (Version 1)
Quarter: 2021Q3

REPORT INFORMATION
  Report Type: Spontaneous
  Country: US (occurrence: US)
  Receive Date: 20210913
  Receipt Date: 20210913
  Transmission Date: 20211014
  Serious: No
  Sender: FDA-Public Use
  Company Number: None

PATIENT
  Age: 63 Year
  Sex: Female

DRUGS (1)
  1. ORENCIA [Suspect]
     Active Substance: ABATACEPT
     Indication: OSTEOARTHRITIS
     Dosage: AS DIRECTED
     Route: 058
     Dates: start: 202005

REACTIONS (2)
  - Influenza like illness [None]
  - Therapy interrupted [None]
